FAERS Safety Report 23105675 (Version 2)
Quarter: 2023Q4

REPORT INFORMATION
  Report Type: Report from Study
  Country: MX (occurrence: MX)
  Receive Date: 20231025
  Receipt Date: 20231208
  Transmission Date: 20240109
  Serious: Yes (Hospitalization, Other)
  Sender: FDA-Public Use
  Company Number: MX-002147023-NVSC2023MX222407

PATIENT
  Age: 69 Year
  Sex: Female
  Weight: 92 kg

DRUGS (4)
  1. ENTRESTO [Suspect]
     Active Substance: SACUBITRIL\VALSARTAN
     Indication: Cardiac failure
     Dosage: 100 MG
     Route: 048
     Dates: start: 202309
  2. ENTRESTO [Suspect]
     Active Substance: SACUBITRIL\VALSARTAN
     Dosage: 1 DOSAGE FORM OF 50 MG, Q12H, BY MOUTH
     Route: 048
  3. ENTRESTO [Suspect]
     Active Substance: SACUBITRIL\VALSARTAN
     Dosage: 2 DOSAGE FORM OF 50 MG, Q12H, BY MOUTH
     Route: 048
  4. DAPAGLIFLOZIN [Concomitant]
     Active Substance: DAPAGLIFLOZIN
     Indication: Hypertension
     Dosage: UNK
     Route: 065

REACTIONS (14)
  - Chronic obstructive pulmonary disease [Unknown]
  - Productive cough [Recovering/Resolving]
  - Dyspnoea [Recovering/Resolving]
  - Blood pressure increased [Not Recovered/Not Resolved]
  - Body mass index increased [Unknown]
  - Temperature intolerance [Unknown]
  - Anxiety [Unknown]
  - Anger [Unknown]
  - Influenza [Recovering/Resolving]
  - Multiple allergies [Unknown]
  - Depressed mood [Unknown]
  - Head discomfort [Recovering/Resolving]
  - Pulmonary pain [Recovering/Resolving]
  - Sensitivity to weather change [Unknown]

NARRATIVE: CASE EVENT DATE: 20230901
